FAERS Safety Report 9771951 (Version 2)
Quarter: 2013Q4

REPORT INFORMATION
  Report Type: Report from Study
  Country: CA (occurrence: CA)
  Receive Date: 20131219
  Receipt Date: 20131227
  Transmission Date: 20140711
  Serious: Yes (Hospitalization, Other)
  Sender: FDA-Public Use
  Company Number: CA-JNJFOC-20131208755

PATIENT
  Sex: Female

DRUGS (3)
  1. REMICADE [Suspect]
     Indication: CROHN^S DISEASE
     Route: 042
     Dates: start: 20101207, end: 201306
  2. METHOTREXATE [Concomitant]
     Indication: CROHN^S DISEASE
     Route: 065
  3. PREDNISONE [Concomitant]
     Indication: CROHN^S DISEASE
     Route: 065

REACTIONS (3)
  - Brain mass [Unknown]
  - Cushing^s syndrome [Unknown]
  - Crohn^s disease [Not Recovered/Not Resolved]
